FAERS Safety Report 6057177-4 (Version None)
Quarter: 2009Q1

REPORT INFORMATION
  Report Type: 
  Country: None (occurrence: None)
  Receive Date: 20090129
  Receipt Date: 20080125
  Transmission Date: 20090719
  Serious: No
  Sender: FDA-Public Use
  Company Number: A0706927A

PATIENT
  Sex: Female

DRUGS (1)
  1. WELLBUTRIN [Suspect]
     Indication: DRUG USE FOR UNKNOWN INDICATION
     Route: 048

REACTIONS (6)
  - CRYING [None]
  - FEAR [None]
  - FEELING OF DESPAIR [None]
  - INSOMNIA [None]
  - MENTAL STATUS CHANGES [None]
  - THINKING ABNORMAL [None]
